FAERS Safety Report 8186568-0 (Version None)
Quarter: 2012Q1

REPORT INFORMATION
  Report Type: 
  Country: None (occurrence: None)
  Receive Date: 20120306
  Receipt Date: 20120224
  Transmission Date: 20120608
  Serious: Yes (Hospitalization, Other)
  Sender: FDA-Public Use
  Company Number: CA-JNJFOC-20120110497

PATIENT
  Sex: Female
  Weight: 84.5 kg

DRUGS (4)
  1. MAVIK [Concomitant]
  2. REMICADE [Suspect]
     Route: 042
     Dates: start: 20080623
  3. IMURAN [Concomitant]
  4. REMICADE [Suspect]
     Indication: CROHN'S DISEASE
     Dosage: HAS HAD 67 INFUSIONS
     Route: 042
     Dates: start: 20030612

REACTIONS (4)
  - SKIN INFECTION [None]
  - INTESTINAL RESECTION [None]
  - THROMBOSIS [None]
  - ILEOSTOMY [None]
